FAERS Safety Report 4709969-9 (Version None)
Quarter: 2005Q3

REPORT INFORMATION
  Report Type: 
  Country: None (occurrence: None)
  Receive Date: 20050706
  Receipt Date: 20050621
  Transmission Date: 20060218
  Serious: Yes (Other)
  Sender: FDA-Public Use
  Company Number: 215513

PATIENT
  Age: 75 Year
  Sex: Male
  Weight: 45 kg

DRUGS (8)
  1. RITUXAN [Suspect]
     Indication: NON-HODGKIN'S LYMPHOMA
     Dosage: 500 MG, INTRAVENOUS
     Route: 042
     Dates: start: 20011206, end: 20020206
  2. FLUDARABINE PHOSPHATE [Suspect]
     Indication: NON-HODGKIN'S LYMPHOMA
     Dosage: 25 MG, INTRAVENOUS
     Route: 042
     Dates: start: 20011207, end: 20020511
  3. NOVANTRONE [Suspect]
     Indication: NON-HODGKIN'S LYMPHOMA
     Dosage: 10 MG, INTRAVENOUS
     Route: 042
     Dates: start: 20011207, end: 20020511
  4. POLARAMINE [Concomitant]
  5. SOLU-MEDROL [Concomitant]
  6. FUNGIZONE [Concomitant]
  7. SULFAMETHOXAZOLE + TRIMETHOPRIM [Concomitant]
  8. LANSOPRAZOLE [Concomitant]

REACTIONS (2)
  - NEUTROPHIL PERCENTAGE INCREASED [None]
  - WHITE BLOOD CELL COUNT DECREASED [None]
